FAERS Safety Report 21240724 (Version 1)
Quarter: 2022Q3

REPORT INFORMATION
  Report Type: Spontaneous
  Country: TW (occurrence: TW)
  Receive Date: 20220823
  Receipt Date: 20220823
  Transmission Date: 20221026
  Serious: Yes (Hospitalization)
  Sender: FDA-Public Use
  Company Number: TW-VALIDUS PHARMACEUTICALS LLC-TW-VDP-2022-015680

PATIENT

DRUGS (5)
  1. CEFOTAXIME SODIUM [Suspect]
     Active Substance: CEFOTAXIME SODIUM
     Indication: Pneumonia
     Dosage: 2 G, ONCE EVERY 8HR (IN THE EMERGENCY ROOM,CEFOTAXIME STAT WAS PRESCRIBED)
     Route: 065
  2. LEVOFLOXACIN [Suspect]
     Active Substance: LEVOFLOXACIN
     Indication: Infection
     Dosage: 750 MILLIGRAM, QD, 19 AUGUST OF UNKNOWN YEAR
     Route: 048
  3. DOXYCYCLINE [Suspect]
     Active Substance: DOXYCYCLINE
     Indication: Pneumonia
     Dosage: 100 MG, BID, IN THE EMERGENCY ROOM, DOXYCYCLINE STAT WAS PRESCRIBED
     Route: 065
  4. ACETAMINOPHEN [Suspect]
     Active Substance: ACETAMINOPHEN
     Indication: Pyrexia
     Dosage: 500 MG, Q6HPRN (IN THE EMERGENCY DEPARTMENT,ON 19 AUGUST ACETAMINOPHEN 500 MG STAT GIVEN)
     Route: 048
  5. ACETAMINOPHEN [Suspect]
     Active Substance: ACETAMINOPHEN
     Dosage: UNK, AS NEEDED (TAKE ONCE ON 8/21 AFTER ADMISSION TO THE WARD ON 8/23, TO EXCLUDE ALLERGIES)
     Route: 065

REACTIONS (4)
  - Rash erythematous [Recovering/Resolving]
  - Skin discolouration [Recovering/Resolving]
  - Hypersensitivity vasculitis [Unknown]
  - Prescribed overdose [Unknown]
